FAERS Safety Report 5886633-4 (Version None)
Quarter: 2008Q3

REPORT INFORMATION
  Report Type: 
  Country: None (occurrence: None)
  Receive Date: 20080917
  Receipt Date: 20080908
  Transmission Date: 20090109
  Serious: Yes (Other)
  Sender: FDA-Public Use
  Company Number: PHHY2008CN10366

PATIENT
  Age: 25 Year
  Sex: Female

DRUGS (2)
  1. SEBIVO [Suspect]
     Indication: HEPATITIS B
     Dosage: 600 MG, QD
     Route: 048
     Dates: start: 20080301, end: 20080601
  2. INTRON A [Concomitant]
     Indication: HEPATITIS B
     Dosage: 5000000 IU, QOD
     Route: 030
     Dates: start: 20071201, end: 20080601

REACTIONS (7)
  - ANAESTHESIA [None]
  - BLOOD CREATINE PHOSPHOKINASE ABNORMAL [None]
  - DYSAESTHESIA [None]
  - HYPOAESTHESIA [None]
  - MUSCULAR WEAKNESS [None]
  - NEUROPATHY PERIPHERAL [None]
  - PARAESTHESIA [None]
